FAERS Safety Report 5619011-3 (Version None)
Quarter: 2008Q1

REPORT INFORMATION
  Report Type: 
  Country: None (occurrence: None)
  Receive Date: 20080207
  Receipt Date: 20080117
  Transmission Date: 20080703
  Serious: No
  Sender: FDA-Public Use
  Company Number: US-BOEHRINGER INGELHEIM GMBH, GERMANY-2008-BP-00919BP

PATIENT
  Sex: Female

DRUGS (8)
  1. SPIRIVA [Suspect]
     Indication: EMPHYSEMA
     Route: 055
     Dates: start: 20060101
  2. ZOCOR [Concomitant]
  3. LIPITOR [Concomitant]
  4. TOPROL [Concomitant]
  5. NORVASC [Concomitant]
  6. ACTONEL [Concomitant]
  7. ISOSORBIDE DINITRATE [Concomitant]
  8. EYE CAPS [Concomitant]

REACTIONS (1)
  - VISUAL DISTURBANCE [None]
